FAERS Safety Report 17798875 (Version 1)
Quarter: 2020Q2

REPORT INFORMATION
  Report Type: Spontaneous
  Country: US (occurrence: US)
  Receive Date: 20200518
  Receipt Date: 20200518
  Transmission Date: 20200714
  Serious: No
  Sender: FDA-Public Use
  Company Number: US-GLAXOSMITHKLINE-US2020082813

PATIENT
  Age: 49 Year
  Sex: Female
  Weight: 68.03 kg

DRUGS (1)
  1. EQUATE NICOTINE [Suspect]
     Active Substance: NICOTINE
     Indication: PRODUCT USED FOR UNKNOWN INDICATION
     Dosage: UNK, TWICE

REACTIONS (2)
  - Application site pain [Recovered/Resolved]
  - Application site reaction [Recovered/Resolved]

NARRATIVE: CASE EVENT DATE: 20200512
